FAERS Safety Report 4321938-X (Version None)
Quarter: 2004Q1

REPORT INFORMATION
  Report Type: 
  Country: None (occurrence: None)
  Receive Date: 20040323
  Receipt Date: 20040218
  Transmission Date: 20041129
  Serious: Yes (Death, Life-Threatening)
  Sender: FDA-Public Use
  Company Number: JP-ROCHE-359477

PATIENT
  Age: 59 Year
  Sex: Male

DRUGS (15)
  1. ROCEPHIN [Suspect]
     Indication: INFECTION
     Route: 041
     Dates: start: 20040206, end: 20040206
  2. BASEN [Suspect]
     Indication: DIABETES MELLITUS
     Route: 048
  3. VITAMEDIN [Concomitant]
     Route: 041
     Dates: start: 20040206, end: 20040206
  4. KEFRAL [Concomitant]
     Indication: BACTERIAL INFECTION
     Route: 048
     Dates: start: 20040206, end: 20040208
  5. LOXONIN [Concomitant]
     Route: 048
     Dates: start: 20040206, end: 20040208
  6. PL [Concomitant]
     Dosage: ALSO DESCRIBED AS TAKEN FROM 05 FEB 2004 TO 08 FEB 2004.
     Route: 048
     Dates: start: 20040119, end: 20040122
  7. VOLTAREN [Concomitant]
     Dates: start: 20040206, end: 20040208
  8. TIENAM [Concomitant]
     Indication: INFLAMMATION
     Route: 041
     Dates: start: 20040217, end: 20040220
  9. DIFLUCAN [Concomitant]
     Indication: INFLAMMATION
     Route: 041
     Dates: start: 20040217, end: 20040220
  10. MENATETRENONE [Concomitant]
     Route: 041
     Dates: start: 20040218, end: 20040228
  11. GASTER [Concomitant]
     Indication: PROPHYLAXIS
     Route: 042
     Dates: start: 20040218, end: 20040228
  12. GLYCEOL [Concomitant]
     Indication: BRAIN OEDEMA
     Route: 041
     Dates: start: 20040218, end: 20040224
  13. ALEVIATIN [Concomitant]
     Indication: CONVULSION
     Dosage: ROTE DESCRIBED AS UV.
     Route: 050
     Dates: start: 20040217, end: 20040226
  14. FUNGUARD [Concomitant]
     Indication: BLOOD BETA-D-GLUCAN INCREASED
     Route: 041
     Dates: start: 20040221, end: 20040227
  15. VANCOMYCIN HYDROCHLORIDE [Concomitant]
     Indication: INFLAMMATION
     Route: 041
     Dates: start: 20040223, end: 20040227

REACTIONS (5)
  - COMA [None]
  - DIALYSIS [None]
  - HEPATITIS FULMINANT [None]
  - LYMPHADENOPATHY [None]
  - SPLEEN SCAN ABNORMAL [None]
